FAERS Safety Report 14335829 (Version 2)
Quarter: 2018Q1

REPORT INFORMATION
  Report Type: Spontaneous
  Country: AU (occurrence: AU)
  Receive Date: 20171229
  Receipt Date: 20180216
  Transmission Date: 20180509
  Serious: Yes (Hospitalization, Disabling, Other)
  Sender: FDA-Public Use
  Company Number: AU-VISTAPHARM, INC.-VER201712-001535

PATIENT
  Age: 38 Year
  Sex: Male
  Weight: 75 kg

DRUGS (3)
  1. PHENYTOIN. [Suspect]
     Active Substance: PHENYTOIN
     Dosage: AT LEAST ONE HUNDRED 100 MG PHENYTOIN CAPSULES (TOTAL INGESTION 10 G; 133 MG/KG)
  2. HUMULIN NOS [Concomitant]
     Active Substance: INSULIN HUMAN
     Indication: TYPE 1 DIABETES MELLITUS
  3. PHENYTOIN. [Suspect]
     Active Substance: PHENYTOIN
     Indication: SEIZURE
     Dosage: CAPSULE

REACTIONS (19)
  - Deep vein thrombosis [Unknown]
  - Device related sepsis [Unknown]
  - Nausea [Unknown]
  - Pneumonia [Unknown]
  - Toxic encephalopathy [Unknown]
  - Dysarthria [Unknown]
  - Somnolence [Unknown]
  - Ataxia [Unknown]
  - Pneumonia aspiration [Unknown]
  - Dizziness [Unknown]
  - Seizure [Unknown]
  - Depressed level of consciousness [Unknown]
  - Nervous system disorder [Unknown]
  - Intentional overdose [Unknown]
  - Overdose [Unknown]
  - Nystagmus [Unknown]
  - Vomiting [Unknown]
  - Toxicity to various agents [Unknown]
  - Gait inability [Unknown]
